FAERS Safety Report 5123044-3 (Version None)
Quarter: 2006Q4

REPORT INFORMATION
  Report Type: 
  Country: None (occurrence: None)
  Receive Date: 20061005
  Receipt Date: 20060922
  Transmission Date: 20070319
  Serious: Yes (Hospitalization)
  Sender: FDA-Public Use
  Company Number: 230393

PATIENT
  Age: 63 Year
  Sex: Male

DRUGS (3)
  1. AVASTIN [Suspect]
     Indication: NON-SMALL CELL LUNG CANCER
  2. CARBOPLATIN [Suspect]
     Indication: NON-SMALL CELL LUNG CANCER
  3. ALIMTA [Suspect]
     Indication: NON-SMALL CELL LUNG CANCER

REACTIONS (6)
  - ABDOMINAL PAIN LOWER [None]
  - CELLULITIS [None]
  - CHOLECYSTITIS [None]
  - CHOLELITHIASIS [None]
  - DIARRHOEA [None]
  - GALLBLADDER PERFORATION [None]
